FAERS Safety Report 21637528 (Version 1)
Quarter: 2022Q4

REPORT INFORMATION
  Report Type: Spontaneous
  Country: AU (occurrence: None)
  Receive Date: 20221124
  Receipt Date: 20221124
  Transmission Date: 20230113
  Serious: Yes (Other)
  Sender: FDA-Public Use
  Company Number: AU-PFIZER INC-PV202200106932

PATIENT
  Age: 62 Year
  Sex: Female

DRUGS (5)
  1. METHOTREXATE [Suspect]
     Active Substance: METHOTREXATE
     Indication: Polymyositis
     Route: 048
     Dates: start: 19900701, end: 19910107
  2. CALCIUM CARBONATE\CALCIUM GLUBIONATE\SODIUM BICARBONATE [Suspect]
     Active Substance: CALCIUM CARBONATE\CALCIUM GLUBIONATE\SODIUM BICARBONATE
     Indication: Product used for unknown indication
     Dosage: DOSE: 1 DOSE UNSPECIFIED
     Route: 048
  3. LASIX [Concomitant]
     Active Substance: FUROSEMIDE
     Indication: Hypertension
     Route: 048
     Dates: start: 19841001
  4. SLOW-K [Concomitant]
     Active Substance: POTASSIUM CHLORIDE
     Indication: Hypertension
     Dosage: DOSE: 2 DOSE UNSPECIFIED
     Route: 048
     Dates: start: 19841001
  5. ZANTAC [Concomitant]
     Active Substance: RANITIDINE HYDROCHLORIDE
     Indication: Hernia
     Route: 048
     Dates: start: 19880601

REACTIONS (6)
  - Pancytopenia [Recovered/Resolved]
  - Product use in unapproved indication [Unknown]
  - Coagulopathy [Recovered/Resolved]
  - Diarrhoea [Recovered/Resolved]
  - Hepatic function abnormal [Recovered/Resolved]
  - Oedema peripheral [Recovered/Resolved]

NARRATIVE: CASE EVENT DATE: 19900101
